FAERS Safety Report 4453963-2 (Version None)
Quarter: 2004Q3

REPORT INFORMATION
  Report Type: 
  Country: None (occurrence: None)
  Receive Date: 20040920
  Receipt Date: 20040720
  Transmission Date: 20050211
  Serious: Yes (Other)
  Sender: FDA-Public Use
  Company Number: FR-GLAXOSMITHKLINE-B0340851A

PATIENT
  Age: 81 Year
  Sex: Male
  Weight: 64 kg

DRUGS (8)
  1. AVANDIA [Suspect]
     Route: 048
     Dates: start: 20030902
  2. AMAREL [Concomitant]
     Dosage: 4MG PER DAY
     Route: 048
     Dates: start: 20031104
  3. GLUCOR [Concomitant]
     Dosage: 100MG THREE TIMES PER DAY
     Route: 048
     Dates: start: 19970101
  4. SECTRAL [Concomitant]
     Dosage: 100MG PER DAY
     Route: 048
     Dates: start: 20040101
  5. TAHOR [Concomitant]
     Route: 048
     Dates: start: 19990101
  6. BISOPROLOL FUMARATE [Concomitant]
     Dosage: 10MG PER DAY
     Route: 048
     Dates: start: 19990101, end: 20040101
  7. ASPIRIN [Concomitant]
     Dosage: 75MG PER DAY
     Route: 048
     Dates: start: 19970101
  8. AMLOR [Concomitant]
     Dosage: 10MG PER DAY
     Route: 048
     Dates: start: 19990101, end: 20040415

REACTIONS (3)
  - DYSPNOEA [None]
  - OEDEMA PERIPHERAL [None]
  - WEIGHT INCREASED [None]
